FAERS Safety Report 10603166 (Version 1)
Quarter: 2014Q4

REPORT INFORMATION
  Report Type: Spontaneous
  Country: ZA (occurrence: ZA)
  Receive Date: 20141124
  Receipt Date: 20141124
  Transmission Date: 20150529
  Serious: Yes (Death, Congenital Anomaly)
  Sender: FDA-Public Use
  Company Number: ZA-ABBVIE-14P-143-1311634-00

PATIENT

DRUGS (1)
  1. EPILIZINE CR [Suspect]
     Active Substance: VALPROATE SODIUM
     Indication: MATERNAL EXPOSURE TIMING UNSPECIFIED
     Route: 064

REACTIONS (4)
  - Abortion induced [Fatal]
  - Foetal malformation [Unknown]
  - Off label use [None]
  - Foetal exposure during pregnancy [Unknown]
